FAERS Safety Report 15049839 (Version 2)
Quarter: 2018Q2

REPORT INFORMATION
  Report Type: Spontaneous
  Country: US (occurrence: US)
  Receive Date: 20180622
  Receipt Date: 20180629
  Transmission Date: 20180711
  Serious: Yes (Other)
  Sender: FDA-Public Use
  Company Number: US-ROCHE-2143565

PATIENT
  Sex: Male

DRUGS (2)
  1. AVASTIN [Suspect]
     Active Substance: BEVACIZUMAB
     Indication: OLIGODENDROGLIOMA
     Dosage: ONGOING: NO
     Route: 065
     Dates: start: 201701, end: 201705
  2. AVASTIN [Suspect]
     Active Substance: BEVACIZUMAB
     Indication: BRAIN NEOPLASM MALIGNANT
     Dosage: ONGOING: NO
     Route: 065
     Dates: end: 2018

REACTIONS (9)
  - Speech disorder [Unknown]
  - Epistaxis [Unknown]
  - Posterior reversible encephalopathy syndrome [Unknown]
  - Tunnel vision [Unknown]
  - Language disorder [Unknown]
  - Fatigue [Unknown]
  - Disorientation [Unknown]
  - Nervous system disorder [Unknown]
  - Gingival bleeding [Unknown]

NARRATIVE: CASE EVENT DATE: 201701
